FAERS Safety Report 14916808 (Version 1)
Quarter: 2018Q2

REPORT INFORMATION
  Report Type: Spontaneous
  Country: BR (occurrence: BR)
  Receive Date: 20180520
  Receipt Date: 20180520
  Transmission Date: 20180711
  Serious: Yes (Other)
  Sender: FDA-Public Use
  Company Number: BR-AMGEN-BRASP2012040349

PATIENT
  Age: 73 Year
  Sex: Male
  Weight: 70 kg

DRUGS (22)
  1. CRESTOR [Concomitant]
     Active Substance: ROSUVASTATIN CALCIUM
     Dosage: 10 MG, 1X/DAY
  2. LANSOPRAZOLE. [Concomitant]
     Active Substance: LANSOPRAZOLE
     Dosage: 30 MG, QD
     Route: 065
  3. ANCORON [Concomitant]
     Active Substance: AMIODARONE HYDROCHLORIDE
     Dosage: 200 MG, CYCLIC (FROM MONDAY TO FRIDAY)
  4. FORASEQ [Concomitant]
     Active Substance: BUDESONIDE\FORMOTEROL FUMARATE
     Dosage: [BUDESONIDE 400MG] /[FORMOTEROL 12MG] (ONE CAPSULE) TWICE DAILY
  5. PANTOCAL [Concomitant]
     Dosage: 40 MG, 1X/DAY
  6. ASPIRIN. [Concomitant]
     Active Substance: ASPIRIN
     Dosage: 10 MG, 1X/DAY
  7. INSULIN GLARGINE [Concomitant]
     Active Substance: INSULIN GLARGINE
     Dosage: UNK, 1X/DAY
  8. FOLIC ACID. [Concomitant]
     Active Substance: FOLIC ACID
     Dosage: WEEKLY (EVERY FRIDAY AFTER LUNCH)
  9. ENBREL [Suspect]
     Active Substance: ETANERCEPT
     Dosage: 50 MG, UNK
     Route: 065
  10. METHOTREXATE. [Concomitant]
     Active Substance: METHOTREXATE
     Dosage: 0.6 MG, WEEKLY (EVERY THURSDAY)
  11. ALENDRONATE SODIUM. [Concomitant]
     Active Substance: ALENDRONATE SODIUM
     Dosage: 70 MG, WEEKLY
  12. VASTAREL [Concomitant]
     Active Substance: TRIMETAZIDINE DIHYDROCHLORIDE
     Dosage: 30 MG, 2X/DAY
  13. LANTUS [Concomitant]
     Active Substance: INSULIN GLARGINE
     Dosage: UNK, 1X/DAY
  14. MINUSORB [Concomitant]
     Dosage: 70 MG, WEEKLY
  15. ENBREL [Suspect]
     Active Substance: ETANERCEPT
     Indication: RHEUMATOID ARTHRITIS
     Dosage: 100 MG (2 APPLICATIONS OF 50 MG), WEEKLY
     Route: 058
     Dates: start: 20120512
  16. CARVEDILOL. [Concomitant]
     Active Substance: CARVEDILOL
     Dosage: 50 MG (TWO TABLETS OF 25MG), 1X/DAY
  17. SPIRIVA [Concomitant]
     Active Substance: TIOTROPIUM BROMIDE MONOHYDRATE
     Dosage: UNK, 1X/DAY
  18. ZYLORIC [Concomitant]
     Active Substance: ALLOPURINOL
     Dosage: 100 MG, 1X/DAY
  19. CALDE [Concomitant]
     Active Substance: CALCIUM CARBONATE\CHOLECALCIFEROL
     Dosage: 50 MG, BID
  20. ASPIRIN PREVENT [Concomitant]
     Active Substance: ASPIRIN
     Dosage: 10 MG, QD
  21. ENALAPRIL [Concomitant]
     Active Substance: ENALAPRIL
     Dosage: 10 MG, 1X/DAY
  22. LASIX [Concomitant]
     Active Substance: FUROSEMIDE
     Dosage: 40 MG, QD

REACTIONS (4)
  - Incorrect dose administered [Unknown]
  - Fall [Unknown]
  - Upper limb fracture [Unknown]
  - Joint dislocation [Not Recovered/Not Resolved]

NARRATIVE: CASE EVENT DATE: 2012
